FAERS Safety Report 4932754-X (Version None)
Quarter: 2006Q1

REPORT INFORMATION
  Report Type: 
  Country: None (occurrence: None)
  Receive Date: 20060302
  Receipt Date: 20060302
  Transmission Date: 20060701
  Serious: Yes (Hospitalization, Disabling)
  Sender: FDA-Public Use
  Company Number: None

PATIENT
  Age: 45 Year
  Sex: Male
  Weight: 113.3993 kg

DRUGS (2)
  1. HYDROCORTISONE ACETATE [Suspect]
     Indication: HAEMORRHOIDS
     Dosage: TWO  PER DAY  RECTAL
     Route: 054
     Dates: start: 20060201, end: 20060301
  2. HYDROCORTISONE AC [Concomitant]

REACTIONS (4)
  - ANORECTAL DISORDER [None]
  - PHARMACEUTICAL PRODUCT COMPLAINT [None]
  - PROCTALGIA [None]
  - RECTAL HAEMORRHAGE [None]
